FAERS Safety Report 14892106 (Version 1)
Quarter: 2018Q2

REPORT INFORMATION
  Report Type: Spontaneous
  Country: US (occurrence: US)
  Receive Date: 20180514
  Receipt Date: 20180514
  Transmission Date: 20180711
  Serious: No
  Sender: FDA-Public Use
  Company Number: US-AKRON, INC.-2047704

PATIENT
  Age: 77 Year
  Sex: Male

DRUGS (2)
  1. CLOBETASOL PROPIONATE OINTMENT [Suspect]
     Active Substance: CLOBETASOL PROPIONATE
     Indication: PSORIASIS
     Route: 061
  2. OTEZLA [Concomitant]
     Active Substance: APREMILAST

REACTIONS (4)
  - Pruritus [Unknown]
  - Rash [Unknown]
  - Burning sensation [Unknown]
  - Pain of skin [Unknown]
